FAERS Safety Report 9322120 (Version 3)
Quarter: 2013Q3

REPORT INFORMATION
  Report Type: Spontaneous
  Country: US (occurrence: US)
  Receive Date: 20130531
  Receipt Date: 20130815
  Transmission Date: 20140515
  Serious: Yes (Other)
  Sender: FDA-Public Use
  Company Number: US-PFIZER INC-2013162872

PATIENT
  Sex: Female

DRUGS (2)
  1. GLUCOTROL XL [Suspect]
     Dosage: 10 MG, UNK
  2. ACCUPRIL [Suspect]
     Dosage: 20 MG, UNK

REACTIONS (1)
  - Bladder disorder [Unknown]
